FAERS Safety Report 10049657 (Version 3)
Quarter: 2025Q1

REPORT INFORMATION
  Report Type: Spontaneous
  Country: US (occurrence: US)
  Receive Date: 20140401
  Receipt Date: 20250307
  Transmission Date: 20250409
  Serious: Yes (Other)
  Sender: SANOFI AVENTIS
  Company Number: US-GENZYME-POMP-1002071

PATIENT
  Age: 12 Year
  Sex: Male
  Weight: 30 kg

DRUGS (6)
  1. LUMIZYME [Suspect]
     Active Substance: ALGLUCOSIDASE ALFA
     Indication: Glycogen storage disease type II
     Dosage: 20 MG/KG,QOW
     Route: 042
     Dates: start: 20100330
  2. LUMIZYME [Suspect]
     Active Substance: ALGLUCOSIDASE ALFA
     Route: 042
     Dates: start: 201006, end: 201202
  3. LUMIZYME [Suspect]
     Active Substance: ALGLUCOSIDASE ALFA
     Dosage: 10 MG/KG,QOW
     Route: 042
     Dates: start: 20120511
  4. LUMIZYME [Suspect]
     Active Substance: ALGLUCOSIDASE ALFA
     Dosage: 20 MG/KG,QOW
     Route: 042
     Dates: start: 201206
  5. BENADRYL [Concomitant]
     Active Substance: DIPHENHYDRAMINE HYDROCHLORIDE
     Indication: Premedication
  6. IBUPROFEN [Concomitant]
     Active Substance: IBUPROFEN
     Indication: Premedication

REACTIONS (10)
  - Chronic recurrent multifocal osteomyelitis [Not Recovered/Not Resolved]
  - Red blood cell sedimentation rate increased [Not Recovered/Not Resolved]
  - Hepatic fibrosis [Not Recovered/Not Resolved]
  - Ultrasound liver abnormal [Not Recovered/Not Resolved]
  - Gamma-glutamyltransferase increased [Not Recovered/Not Resolved]
  - Arthralgia [Not Recovered/Not Resolved]
  - Skin lesion [Unknown]
  - C-reactive protein increased [Recovered/Resolved]
  - Anaemia [Unknown]
  - Fall [Unknown]

NARRATIVE: CASE EVENT DATE: 20111201
